FAERS Safety Report 14557103 (Version 3)
Quarter: 2018Q2

REPORT INFORMATION
  Report Type: Spontaneous
  Country: FR (occurrence: FR)
  Receive Date: 20180221
  Receipt Date: 20180604
  Transmission Date: 20180711
  Serious: Yes (Life-Threatening, Hospitalization)
  Sender: FDA-Public Use
  Company Number: FR-BAXTER-2018BAX005584

PATIENT
  Age: 62 Year
  Sex: Male
  Weight: 101.7 kg

DRUGS (11)
  1. CEFTRIAXONE. [Suspect]
     Active Substance: CEFTRIAXONE
     Indication: RHONCHI
     Dosage: POST-DIALYSIS?ROCEPHIN
     Route: 042
     Dates: start: 20180112, end: 20180112
  2. NEORECORMON [Concomitant]
     Active Substance: ERYTHROPOIETIN
     Indication: PRODUCT USED FOR UNKNOWN INDICATION
     Dosage: ON MONDAYS, WEDNESDAYS AND FRIDAYS
     Route: 042
  3. FER PANPHARMA [Concomitant]
     Active Substance: IRON SUCROSE
     Indication: PRODUCT USED FOR UNKNOWN INDICATION
     Dosage: ON WEDNESDAYS, 100 MG/5 ML
     Route: 041
  4. GLUCOSE 5 % VIAFLO, SOLUTION POUR PERFUSION [Suspect]
     Active Substance: DEXTROSE
     Indication: MEDICATION DILUTION
     Route: 042
     Dates: start: 20180112, end: 20180112
  5. CORDARONE [Concomitant]
     Active Substance: AMIODARONE HYDROCHLORIDE
     Indication: PRODUCT USED FOR UNKNOWN INDICATION
     Dosage: AT MIDDAY
     Route: 048
  6. KAYEXALATE [Concomitant]
     Active Substance: SODIUM POLYSTYRENE SULFONATE
     Indication: PRODUCT USED FOR UNKNOWN INDICATION
     Dosage: ON FRIDAYS AND ON SUNDAYS
     Route: 048
  7. GLUCOSE 5 % VIAFLO, SOLUTION POUR PERFUSION [Suspect]
     Active Substance: DEXTROSE
     Route: 042
     Dates: start: 20180112, end: 20180112
  8. PREVISCAN (FLUINDIONE) [Concomitant]
     Active Substance: FLUINDIONE
     Indication: PRODUCT USED FOR UNKNOWN INDICATION
     Dosage: IN THE EVENING
     Route: 048
  9. VELPHORO [Concomitant]
     Active Substance: FERRIC OXYHYDROXIDE
     Indication: PRODUCT USED FOR UNKNOWN INDICATION
     Dosage: IN THE MORNING, AT MIDDAY AND IN THE EVENING
     Route: 048
  10. INEXIUM [Concomitant]
     Active Substance: ESOMEPRAZOLE
     Indication: PRODUCT USED FOR UNKNOWN INDICATION
     Dosage: IN THE EVENING
     Route: 048
  11. HEPARIN [Concomitant]
     Active Substance: HEPARIN SODIUM
     Indication: PRODUCT USED FOR UNKNOWN INDICATION
     Dosage: 2.5 ML/H ON MONDAYS, WEDNESDAYS, THURSDAYS, FRIDAYS AND SATURDAYS
     Route: 042

REACTIONS (11)
  - Loss of consciousness [Recovered/Resolved]
  - Condition aggravated [Recovered/Resolved]
  - Respiratory distress [Recovered/Resolved]
  - Circulatory collapse [Recovered/Resolved]
  - Crepitations [None]
  - Oxygen saturation decreased [None]
  - Drug hypersensitivity [Recovered/Resolved]
  - Swelling [Recovered/Resolved]
  - Swelling face [Recovered/Resolved]
  - Rales [Recovered/Resolved]
  - Erythema [Recovered/Resolved]

NARRATIVE: CASE EVENT DATE: 20180112
